FAERS Safety Report 6051966-8 (Version None)
Quarter: 2009Q1

REPORT INFORMATION
  Report Type: 
  Country: None (occurrence: None)
  Receive Date: 20090126
  Receipt Date: 20090114
  Transmission Date: 20090719
  Serious: Yes (Death)
  Sender: FDA-Public Use
  Company Number: GB-AVENTIS-200910685GDDC

PATIENT

DRUGS (1)
  1. GLIBENCLAMIDE [Suspect]

REACTIONS (1)
  - DEATH [None]
